FAERS Safety Report 7535549-6 (Version None)
Quarter: 2011Q2

REPORT INFORMATION
  Report Type: 
  Country: None (occurrence: None)
  Receive Date: 20110609
  Receipt Date: 20110531
  Transmission Date: 20111010
  Serious: Yes (Hospitalization)
  Sender: FDA-Public Use
  Company Number: US-JNJFOC-20110403801

PATIENT
  Sex: Male

DRUGS (4)
  1. TOPAMAX [Suspect]
     Route: 064
     Dates: end: 20110309
  2. ELAVIL [Suspect]
     Indication: DRUG EXPOSURE DURING PREGNANCY
     Route: 064
  3. TOPAMAX [Suspect]
     Indication: DRUG EXPOSURE DURING PREGNANCY
     Dosage: START DATE- 19-OCT
     Route: 064
  4. LEXAPRO [Suspect]
     Indication: DRUG EXPOSURE DURING PREGNANCY
     Dosage: ON THERAPY FOR 7 WEEKS
     Route: 064
     Dates: end: 20110309

REACTIONS (5)
  - METABOLIC ACIDOSIS [None]
  - RESPIRATORY DISTRESS [None]
  - HYPOTONIA [None]
  - BRADYCARDIA [None]
  - APNOEA [None]
